FAERS Safety Report 8816612 (Version 1)
Quarter: 2012Q4

REPORT INFORMATION
  Report Type: Spontaneous
  Country: US (occurrence: None)
  Receive Date: 20121001
  Receipt Date: 20121001
  Transmission Date: 20130627
  Serious: Yes (Other)
  Sender: FDA-Public Use
  Company Number: None

PATIENT
  Age: 82 Year
  Sex: Male

DRUGS (1)
  1. ZYTIGA [Suspect]
     Indication: PROSTATE CANCER
     Route: 048
     Dates: start: 20120305

REACTIONS (6)
  - Blood triglycerides increased [None]
  - Musculoskeletal discomfort [None]
  - Cough [None]
  - Nocturia [None]
  - Tremor [None]
  - Uveitis [None]
